FAERS Safety Report 4636552-6 (Version None)
Quarter: 2005Q2

REPORT INFORMATION
  Report Type: 
  Country: None (occurrence: None)
  Receive Date: 20050415
  Receipt Date: 20050405
  Transmission Date: 20051028
  Serious: Yes (Hospitalization)
  Sender: FDA-Public Use
  Company Number: NL-GLAXOSMITHKLINE-B0377980A

PATIENT
  Age: 82 Year
  Sex: Female

DRUGS (6)
  1. AMOXICILLIN AND CLAVULANATE POTASSIUM [Suspect]
     Indication: RESPIRATORY TRACT INFECTION
     Dosage: 1TAB FOUR TIMES PER DAY
     Route: 048
     Dates: start: 20050309
  2. NORVASC [Concomitant]
     Dosage: 5MG PER DAY
     Route: 065
     Dates: start: 19940101
  3. PREDNISON [Concomitant]
     Indication: RESPIRATORY TRACT INFECTION
     Dosage: 5MG SIX TIMES PER DAY
     Route: 065
     Dates: start: 20050316
  4. TRIAMTEREN + HYDROCHLOROTHIAZIDE [Concomitant]
     Dosage: 1TAB PER DAY
     Route: 065
     Dates: start: 19940101
  5. BENEMID [Concomitant]
     Dosage: 500MG TWICE PER DAY
     Route: 065
     Dates: start: 19940101
  6. RHINOCORT [Concomitant]
     Dosage: .2MG TWICE PER DAY
     Route: 055
     Dates: start: 19940101

REACTIONS (6)
  - ALANINE AMINOTRANSFERASE INCREASED [None]
  - ASPARTATE AMINOTRANSFERASE INCREASED [None]
  - BLOOD ALKALINE PHOSPHATASE INCREASED [None]
  - BLOOD BILIRUBIN INCREASED [None]
  - GAMMA-GLUTAMYLTRANSFERASE INCREASED [None]
  - JAUNDICE [None]
